FAERS Safety Report 15726400 (Version 2)
Quarter: 2018Q4

REPORT INFORMATION
  Report Type: Spontaneous
  Country: US (occurrence: US)
  Receive Date: 20181217
  Receipt Date: 20181227
  Transmission Date: 20190205
  Serious: Yes (Other)
  Sender: FDA-Public Use
  Company Number: US-JNJFOC-20181208592

PATIENT
  Sex: Female

DRUGS (1)
  1. NEUTROGENA SKIN CLEARING [Suspect]
     Active Substance: SALICYLIC ACID
     Indication: PRODUCT USED FOR UNKNOWN INDICATION
     Route: 061

REACTIONS (5)
  - Application site swelling [Unknown]
  - Eye burns [Unknown]
  - Application site exfoliation [Unknown]
  - Skin wrinkling [Unknown]
  - Ocular hyperaemia [Unknown]
